FAERS Safety Report 6128662-1 (Version None)
Quarter: 2009Q1

REPORT INFORMATION
  Report Type: 
  Country: None (occurrence: None)
  Receive Date: 20090319
  Receipt Date: 20090303
  Transmission Date: 20090719
  Serious: Yes (Other)
  Sender: FDA-Public Use
  Company Number: 001#1#2008-00126

PATIENT
  Sex: Male

DRUGS (1)
  1. NEUPRO [Suspect]
     Indication: PARKINSON'S DISEASE
     Dosage: (8 MG QD TRANSDERMAL)
     Route: 062
     Dates: start: 20070801, end: 20080101

REACTIONS (2)
  - APPLICATION SITE REACTION [None]
  - SKIN MACERATION [None]
